FAERS Safety Report 10369016 (Version 2)
Quarter: 2014Q3

REPORT INFORMATION
  Report Type: Report from Study
  Country: US (occurrence: US)
  Receive Date: 20140807
  Receipt Date: 20140807
  Transmission Date: 20150326
  Serious: Yes (Other)
  Sender: FDA-Public Use
  Company Number: US-SA-2014SA058960

PATIENT
  Age: 57 Year
  Sex: Female

DRUGS (1)
  1. AUBAGIO [Suspect]
     Active Substance: TERIFLUNOMIDE
     Indication: MULTIPLE SCLEROSIS
     Route: 048
     Dates: start: 20140414

REACTIONS (8)
  - Nephrolithiasis [Unknown]
  - Back pain [Not Recovered/Not Resolved]
  - Hypoaesthesia [Unknown]
  - Renal impairment [Unknown]
  - Musculoskeletal stiffness [Not Recovered/Not Resolved]
  - Fatigue [Not Recovered/Not Resolved]
  - Glucose urine present [Unknown]
  - Arthralgia [Not Recovered/Not Resolved]
